FAERS Safety Report 10483480 (Version 1)
Quarter: 2014Q3

REPORT INFORMATION
  Report Type: Spontaneous
  Country: US (occurrence: None)
  Receive Date: 20140908
  Receipt Date: 20140908
  Transmission Date: 20150326
  Serious: Yes (Other)
  Sender: FDA-Public Use
  Company Number: 399137

PATIENT
  Age: 70 Year
  Sex: Male
  Weight: 100.2 kg

DRUGS (13)
  1. VICTOZA [Suspect]
     Active Substance: LIRAGLUTIDE
     Indication: TYPE 2 DIABETES MELLITUS
     Dosage: 1.8 MG IN AM, SUBCUTANEOUS
     Route: 058
     Dates: start: 201110, end: 20140120
  2. METFORMIN [Concomitant]
     Active Substance: METFORMIN HYDROCHLORIDE
  3. TRIAMTERENE AND HYDROCHLOROTHIAZIDE (HYDROCHLOROTHIAZIDE, TRIAMTERENE) [Concomitant]
  4. TRICOR [Concomitant]
     Active Substance: FENOFIBRATE
  5. TYLENOL W/CODEINE NO. 3 (CODEINE PHOSPHATE, PARACETAMOL) [Concomitant]
  6. ZANTAC [Concomitant]
     Active Substance: RANITIDINE HYDROCHLORIDE
  7. LANTUS [Concomitant]
     Active Substance: INSULIN GLARGINE
  8. ASPIRIN (ACETYLSALICYLIC ACID) [Concomitant]
     Active Substance: ASPIRIN
  9. COZAAR [Concomitant]
     Active Substance: LOSARTAN POTASSIUM
  10. ZOCOR [Concomitant]
     Active Substance: SIMVASTATIN
  11. NITROSTAT (GLYCERYL TRINITRATE) [Concomitant]
  12. NEURONTIN [Concomitant]
     Active Substance: GABAPENTIN
  13. AMARYL [Concomitant]
     Active Substance: GLIMEPIRIDE

REACTIONS (1)
  - Pancreatitis [None]

NARRATIVE: CASE EVENT DATE: 20140120
